FAERS Safety Report 5824577-4 (Version None)
Quarter: 2008Q3

REPORT INFORMATION
  Report Type: 
  Country: None (occurrence: None)
  Receive Date: 20080728
  Receipt Date: 20080201
  Transmission Date: 20090109
  Serious: No
  Sender: FDA-Public Use
  Company Number: US-BAYER-200810528BCC

PATIENT
  Age: 11 Year
  Sex: Female
  Weight: 34 kg

DRUGS (2)
  1. ALEVE [Suspect]
     Indication: NASOPHARYNGITIS
     Dosage: TOTAL DAILY DOSE: 660 MG  UNIT DOSE: 220 MG
     Dates: start: 20080201
  2. TARGET CHILDREN'S COUGH AND COLD [Suspect]
     Indication: NASOPHARYNGITIS
     Dates: start: 20080201

REACTIONS (1)
  - ABDOMINAL PAIN UPPER [None]
